FAERS Safety Report 23764253 (Version 1)
Quarter: 2024Q2

REPORT INFORMATION
  Report Type: Spontaneous
  Country: US (occurrence: US)
  Receive Date: 20240420
  Receipt Date: 20240420
  Transmission Date: 20240716
  Serious: No
  Sender: FDA-Public Use
  Company Number: US-SA-SAC20240413000256

PATIENT
  Age: 13 Year
  Sex: Female

DRUGS (1)
  1. DUPIXENT [Suspect]
     Active Substance: DUPILUMAB
     Indication: Dermatitis atopic
     Dosage: 200 MG, QOW
     Route: 058

REACTIONS (5)
  - Skin ulcer [Recovered/Resolved]
  - Skin irritation [Recovered/Resolved]
  - Dry skin [Not Recovered/Not Resolved]
  - Erythema [Recovered/Resolved]
  - Pruritus [Not Recovered/Not Resolved]
